FAERS Safety Report 23289119 (Version 1)
Quarter: 2023Q4

REPORT INFORMATION
  Report Type: Spontaneous
  Country: US (occurrence: US)
  Receive Date: 20231212
  Receipt Date: 20231212
  Transmission Date: 20240109
  Serious: Yes (Other)
  Sender: FDA-Public Use
  Company Number: US-FreseniusKabi-FK202319925

PATIENT
  Age: 6 Year
  Sex: Male

DRUGS (3)
  1. PROPOFOL [Suspect]
     Active Substance: PROPOFOL
     Indication: Anaesthesia
     Dosage: DOSE, FREQUENCY, AND ROUTE OF ADMINISTRATION: NOT PROVIDED?LOT: ASKED BUT UNKNOWN?START DATE: APPROX
  2. FENTANYL [Suspect]
     Active Substance: FENTANYL\FENTANYL CITRATE
     Indication: Anaesthesia
     Dosage: DOSE, FREQUENCY AND ROUTE OF ADMINISTRATION: NOT PROVIDED?LOT: ASKED BUT UNKNOWN?START DATE: APPROX.
  3. SEVOFLURANE [Suspect]
     Active Substance: SEVOFLURANE
     Indication: Anaesthesia
     Dosage: DOSE, FREQUENCY, AND ROUTE OF ADMINISTRATION: ASKED BUT UNKNOWN.?LOT: ASKED BUT UNKNOWN?START DATE:

REACTIONS (2)
  - Myoclonus [Not Recovered/Not Resolved]
  - Opisthotonus [Not Recovered/Not Resolved]
